FAERS Safety Report 5183494-6 (Version None)
Quarter: 2006Q4

REPORT INFORMATION
  Report Type: 
  Country: None (occurrence: None)
  Receive Date: 20061220
  Receipt Date: 20060117
  Transmission Date: 20070319
  Serious: No
  Sender: FDA-Public Use
  Company Number: US-GLAXOSMITHKLINE-A0589575A

PATIENT
  Age: 62 Year
  Sex: Male

DRUGS (5)
  1. NICODERM CQ [Suspect]
  2. NEXIUM [Concomitant]
  3. LIBRIUM [Concomitant]
  4. CLONIDINE [Concomitant]
  5. METFORMIN [Concomitant]

REACTIONS (4)
  - APPLICATION SITE ERYTHEMA [None]
  - APPLICATION SITE PRURITUS [None]
  - APPLICATION SITE RASH [None]
  - APPLICATION SITE URTICARIA [None]
